FAERS Safety Report 7961755-2 (Version None)
Quarter: 2011Q4

REPORT INFORMATION
  Report Type: 
  Country: None (occurrence: None)
  Receive Date: 20111207
  Receipt Date: 20111129
  Transmission Date: 20120403
  Serious: Yes (Hospitalization)
  Sender: FDA-Public Use
  Company Number: PHHY2011DK65640

PATIENT
  Sex: Female

DRUGS (3)
  1. GESTODENE AND ETHINYL ESTRADIOL [Suspect]
     Indication: ORAL CONTRACEPTION
     Dosage: 1 DF, UNK
     Route: 048
  2. GESTODENE AND ETHINYL ESTRADIOL [Suspect]
     Route: 048
  3. GESTODENE AND ETHINYL ESTRADIOL [Suspect]
     Route: 048

REACTIONS (9)
  - THROMBOSIS [None]
  - SENSORY DISTURBANCE [None]
  - CIRCULATORY COLLAPSE [None]
  - DISCOMFORT [None]
  - OEDEMA PERIPHERAL [None]
  - PARAESTHESIA [None]
  - BACK PAIN [None]
  - SKIN DISCOLOURATION [None]
  - PAIN IN EXTREMITY [None]
